FAERS Safety Report 18462166 (Version 7)
Quarter: 2021Q1

REPORT INFORMATION
  Report Type: Report from Study
  Country: US (occurrence: US)
  Receive Date: 20201104
  Receipt Date: 20210315
  Transmission Date: 20210419
  Serious: Yes (Other)
  Sender: FDA-Public Use
  Company Number: US-GLAXOSMITHKLINE-US2020AMR216083

PATIENT
  Sex: Male

DRUGS (1)
  1. BELANTAMAB MAFODOTIN. [Suspect]
     Active Substance: BELANTAMAB MAFODOTIN
     Indication: PLASMA CELL MYELOMA
     Dosage: UNK UNK, Z (DOSE REDUCED? 3 QUATER FULL DOSE?EVERY 4 WEEKS)
     Dates: start: 202101

REACTIONS (13)
  - Punctate keratitis [Unknown]
  - Night blindness [Unknown]
  - Photophobia [Unknown]
  - Chest pain [Unknown]
  - Abdominal discomfort [Not Recovered/Not Resolved]
  - Foreign body sensation in eyes [Unknown]
  - Photosensitivity reaction [Unknown]
  - Keratopathy [Unknown]
  - Dry eye [Not Recovered/Not Resolved]
  - Fatigue [Unknown]
  - Pelvic pain [Not Recovered/Not Resolved]
  - Visual acuity reduced [Unknown]
  - Off label use [Not Recovered/Not Resolved]
